FAERS Safety Report 8736563 (Version 2)
Quarter: 2012Q4

REPORT INFORMATION
  Report Type: Report from Study
  Country: CA (occurrence: CA)
  Receive Date: 20120822
  Receipt Date: 20120829
  Transmission Date: 20130627
  Serious: Yes (Other)
  Sender: FDA-Public Use
  Company Number: CA-UCBSA-063827

PATIENT
  Age: 66 Year
  Sex: Female
  Weight: 84 kg

DRUGS (8)
  1. CIMZIA [Suspect]
     Indication: RHEUMATOID ARTHRITIS
     Dosage: EVERY 2 WEEKS X3
     Route: 058
     Dates: start: 20120803, end: 20120803
  2. PREDNISONE [Suspect]
     Indication: CONDITION AGGRAVATED
     Route: 048
     Dates: start: 20120803
  3. GABAPENTIN [Concomitant]
     Indication: PAIN
     Route: 048
  4. OXYNEO [Concomitant]
     Indication: PAIN
     Route: 048
  5. SYNTHROID [Concomitant]
     Indication: HYPOTHYROIDISM
     Route: 048
  6. PERCOCETTE [Concomitant]
     Indication: PAIN
     Dosage: 2 TABS
     Route: 048
  7. PROZAC [Concomitant]
     Indication: ANTIDEPRESSANT THERAPY
     Route: 048
  8. TAMAZEPAM [Concomitant]
     Dosage: BEDTIME DAILY

REACTIONS (1)
  - Localised infection [Recovering/Resolving]
